FAERS Safety Report 17559521 (Version 3)
Quarter: 2024Q2

REPORT INFORMATION
  Report Type: Other
  Country: US (occurrence: None)
  Receive Date: 20200319
  Receipt Date: 20240511
  Transmission Date: 20240716
  Serious: Yes (Other)
  Sender: FDA-Public Use
  Company Number: US-ROCHE-2566227

PATIENT
  Sex: Female

DRUGS (1)
  1. OCREVUS [Suspect]
     Active Substance: OCRELIZUMAB
     Indication: Relapsing multiple sclerosis
     Dosage: HE RECEIVED OCRELIZUMAB TREATMENT : 23/AUG/2018, 29/AUG/2018    13/SEP/2018    04/MAR/2019,   3/MA
     Route: 065

REACTIONS (2)
  - Arthritis infective [Unknown]
  - Illness [Unknown]
